FAERS Safety Report 8087165-8 (Version None)
Quarter: 2012Q1

REPORT INFORMATION
  Report Type: 
  Country: None (occurrence: None)
  Receive Date: 20120128
  Receipt Date: 20110414
  Transmission Date: 20120608
  Serious: No
  Sender: FDA-Public Use
  Company Number: US-ABBOTT-11P-163-0719494-00

PATIENT
  Age: 57 Year
  Sex: Male

DRUGS (6)
  1. ALLOPURINOL [Concomitant]
     Indication: NEPHROPATHY
  2. DIAVAN [Concomitant]
     Indication: HYPERTENSION
  3. NUCYNTA [Concomitant]
     Indication: PAIN
     Dosage: X1 EVERY 4-6 HOURS
  4. AMBIEN CR [Concomitant]
     Indication: INSOMNIA
  5. ZOCOR [Concomitant]
     Indication: BLOOD CHOLESTEROL INCREASED
  6. HUMIRA [Suspect]
     Indication: ANKYLOSING SPONDYLITIS

REACTIONS (1)
  - NASOPHARYNGITIS [None]
